FAERS Safety Report 8923016 (Version 1)
Quarter: 2012Q4

REPORT INFORMATION
  Report Type: Spontaneous
  Country: US (occurrence: None)
  Receive Date: 20121115
  Receipt Date: 20121115
  Transmission Date: 20130627
  Serious: Yes (Other)
  Sender: FDA-Public Use
  Company Number: None

PATIENT
  Age: 43 Year
  Sex: Female
  Weight: 65.77 kg

DRUGS (2)
  1. METHYLPREDNISOLONE [Suspect]
     Indication: TONSILLAR DISORDER
     Dosage: 6 day 1, 5 day 2, 4 day 3 throughout the day po
     Route: 048
     Dates: start: 20121106, end: 20121111
  2. METHYLPREDNISOLONE [Suspect]
     Indication: SWELLING
     Dosage: 6 day 1, 5 day 2, 4 day 3 throughout the day po
     Route: 048
     Dates: start: 20121106, end: 20121111

REACTIONS (5)
  - Dizziness [None]
  - Impaired driving ability [None]
  - Activities of daily living impaired [None]
  - Vision blurred [None]
  - Nausea [None]
